FAERS Safety Report 7995491-3 (Version None)
Quarter: 2011Q4

REPORT INFORMATION
  Report Type: 
  Country: None (occurrence: None)
  Receive Date: 20111220
  Receipt Date: 20111215
  Transmission Date: 20120403
  Serious: No
  Sender: FDA-Public Use
  Company Number: US-PFIZER INC-2011305836

PATIENT

DRUGS (1)
  1. MISOPROSTOL [Suspect]
     Dosage: 800 UG, UNK

REACTIONS (1)
  - RETCHING [None]
